FAERS Safety Report 4333658-6 (Version None)
Quarter: 2004Q2

REPORT INFORMATION
  Report Type: 
  Country: None (occurrence: None)
  Receive Date: 20040405
  Receipt Date: 20040405
  Transmission Date: 20050107
  Serious: Yes (Other)
  Sender: FDA-Public Use
  Company Number: None

PATIENT
  Age: 61 Year
  Sex: Male

DRUGS (2)
  1. VORICONAZOLE (V FEND )-PFIZER [Suspect]
     Indication: ASPERGILLOSIS
     Dosage: 200 MG PO BID X 28 DOSES
     Route: 048
  2. VORICONAZOLE (V FEND )-PFIZER [Suspect]
     Indication: PROPHYLAXIS
     Dosage: 200 MG PO BID X 28 DOSES
     Route: 048

REACTIONS (1)
  - HEPATIC ENZYME INCREASED [None]
